FAERS Safety Report 5487792-8 (Version None)
Quarter: 2007Q4

REPORT INFORMATION
  Report Type: 
  Country: None (occurrence: None)
  Receive Date: 20071017
  Receipt Date: 20071004
  Transmission Date: 20080405
  Serious: Yes (Other)
  Sender: FDA-Public Use
  Company Number: FR-JNJFOC-20071003632

PATIENT
  Age: 60 Year
  Sex: Female

DRUGS (5)
  1. IXPRIM [Suspect]
     Indication: PAIN
     Dosage: 37.5 AND 325 MG RESPECTIVELY, 3 TO 4 TABLETS
     Route: 048
  2. INSULIN [Concomitant]
     Indication: DIABETES MELLITUS
     Route: 065
  3. ANTIHYPERTENSIVES [Concomitant]
     Route: 065
  4. CHOLESTEROL- AND TRIGLYCERIDE REDUCERS [Concomitant]
     Route: 065
  5. VASODILATOR [Concomitant]
     Route: 065

REACTIONS (1)
  - HYPOGLYCAEMIA [None]
